FAERS Safety Report 4883399-1 (Version None)
Quarter: 2006Q1

REPORT INFORMATION
  Report Type: 
  Country: None (occurrence: None)
  Receive Date: 20060113
  Receipt Date: 20060104
  Transmission Date: 20060701
  Serious: Yes (Other)
  Sender: FDA-Public Use
  Company Number: 2005160739

PATIENT
  Age: 52 Year
  Sex: Male

DRUGS (4)
  1. NORVASC [Suspect]
     Indication: HYPERTENSION
     Dosage: 5 MG (2.5 MG, 2 IN 1 D), ORAL
     Route: 048
     Dates: start: 20050201, end: 20051101
  2. NORVASC [Suspect]
     Indication: MYOCARDIAL ISCHAEMIA
     Dosage: 5 MG (2.5 MG, 2 IN 1 D), ORAL
     Route: 048
     Dates: start: 20050201, end: 20051101
  3. ISOSORBIDE DINITRATE [Concomitant]
  4. TRIMETAZIDINE (TRIMETAZIDINE) [Concomitant]

REACTIONS (5)
  - CARDIAC FAILURE [None]
  - GENERALISED OEDEMA [None]
  - HYPOPROTEINAEMIA [None]
  - HYPOTENSION [None]
  - PLEURAL EFFUSION [None]
